FAERS Safety Report 11867796 (Version 5)
Quarter: 2023Q1

REPORT INFORMATION
  Report Type: Spontaneous
  Country: FR (occurrence: FR)
  Receive Date: 20151224
  Receipt Date: 20230317
  Transmission Date: 20230417
  Serious: Yes (Other)
  Sender: FDA-Public Use
  Company Number: FR-ARIAD PHARMACEUTICALS, INC-2015FR005895

PATIENT
  Age: 14 Year
  Sex: Female
  Weight: 52.1 kg

DRUGS (33)
  1. PONATINIB [Suspect]
     Active Substance: PONATINIB
     Indication: Acute myeloid leukaemia refractory
     Dosage: 45 MILLIGRAM, QD
     Route: 048
     Dates: start: 20140322, end: 20140422
  2. PONATINIB [Suspect]
     Active Substance: PONATINIB
     Indication: Tyrosine kinase mutation
     Dosage: 45 MILLIGRAM, QD
     Route: 048
     Dates: start: 20140614, end: 20140710
  3. PONATINIB [Suspect]
     Active Substance: PONATINIB
     Dosage: UNK
     Route: 048
     Dates: end: 201410
  4. CLOFARABINE [Suspect]
     Active Substance: CLOFARABINE
     Indication: Acute myeloid leukaemia refractory
     Dosage: 40 MILLIGRAM/SQ. METER
     Route: 065
     Dates: start: 20140310
  5. CLOFARABINE [Suspect]
     Active Substance: CLOFARABINE
     Indication: Tyrosine kinase mutation
     Dosage: 200 MILLIGRAM/SQ. METER
     Route: 065
  6. CYTARABINE [Concomitant]
     Active Substance: CYTARABINE
     Indication: Acute myeloid leukaemia refractory
     Dosage: UNK
  7. DAUNORUBICIN [Concomitant]
     Active Substance: DAUNORUBICIN
     Indication: Acute myeloid leukaemia refractory
     Dosage: 60 MILLIGRAM/SQ. METER
     Route: 065
     Dates: start: 20140310
  8. DAUNORUBICIN [Concomitant]
     Active Substance: DAUNORUBICIN
     Indication: Tyrosine kinase mutation
     Dosage: 180 MILLIGRAM/SQ. METER
     Route: 065
  9. DAUNORUBICIN [Concomitant]
     Active Substance: DAUNORUBICIN
     Indication: Acute myeloid leukaemia (in remission)
  10. CASPOFUNGIN [Concomitant]
     Active Substance: CASPOFUNGIN
     Indication: Product used for unknown indication
     Dosage: UNK
     Route: 065
  11. AMPHOTERICIN B [Concomitant]
     Active Substance: AMPHOTERICIN B
     Indication: Product used for unknown indication
     Dosage: UNK
     Route: 065
  12. ATARAX [Concomitant]
     Active Substance: HYDROXYZINE HYDROCHLORIDE
     Indication: Product used for unknown indication
     Dosage: UNK
     Route: 065
  13. DEXAMETHASONE\NEOMYCIN SULFATE [Concomitant]
     Active Substance: DEXAMETHASONE\NEOMYCIN SULFATE
     Indication: Product used for unknown indication
     Dosage: UNK
     Route: 065
  14. URSODIOL [Concomitant]
     Active Substance: URSODIOL
     Indication: Product used for unknown indication
     Dosage: UNK
     Route: 065
  15. URSODIOL [Concomitant]
     Active Substance: URSODIOL
     Dosage: UNK
     Route: 065
  16. PIPERACILLIN [Concomitant]
     Active Substance: PIPERACILLIN
     Indication: Product used for unknown indication
     Dosage: UNK
     Route: 065
  17. VANCOMYCIN [Concomitant]
     Active Substance: VANCOMYCIN
     Indication: Product used for unknown indication
     Dosage: UNK
     Route: 065
  18. RANITIDINE [Concomitant]
     Active Substance: RANITIDINE
     Indication: Abdominal pain upper
     Dosage: UNK
     Route: 065
  19. AMIKLIN                            /00391001/ [Concomitant]
     Indication: Product used for unknown indication
     Dosage: UNK
     Route: 065
  20. PIPERACILLIN SODIUM\TAZOBACTAM SODIUM [Concomitant]
     Active Substance: PIPERACILLIN SODIUM\TAZOBACTAM SODIUM
     Indication: Product used for unknown indication
     Dosage: UNK
     Route: 065
  21. PIPERACILLIN SODIUM\TAZOBACTAM SODIUM [Concomitant]
     Active Substance: PIPERACILLIN SODIUM\TAZOBACTAM SODIUM
     Dosage: UNK
     Route: 065
  22. VORICONAZOLE [Concomitant]
     Active Substance: VORICONAZOLE
     Indication: Product used for unknown indication
     Dosage: UNK
     Route: 065
  23. CYCLOSPORINE [Concomitant]
     Active Substance: CYCLOSPORINE
     Indication: Immunosuppressant drug therapy
     Dosage: UNK
     Route: 065
     Dates: start: 20140414, end: 201404
  24. VFEND [Concomitant]
     Active Substance: VORICONAZOLE
     Indication: Product used for unknown indication
     Dosage: UNK
     Route: 065
  25. CYTARABINE [Concomitant]
     Active Substance: CYTARABINE
     Indication: Acute myeloid leukaemia refractory
     Dosage: UNK
     Route: 065
     Dates: start: 20140310
  26. CYTARABINE [Concomitant]
     Active Substance: CYTARABINE
     Indication: Tyrosine kinase mutation
  27. CYTARABINE [Concomitant]
     Active Substance: CYTARABINE
     Indication: Acute myeloid leukaemia recurrent
  28. ENDOXAN                            /00021101/ [Concomitant]
     Indication: Bone marrow conditioning regimen
     Dosage: UNK
     Route: 065
  29. BUSULFAN [Concomitant]
     Active Substance: BUSULFAN
     Indication: Bone marrow conditioning regimen
     Dosage: UNK
     Route: 065
     Dates: start: 20140414, end: 201404
  30. AMITRIPTYLINE HYDROCHLORIDE [Concomitant]
     Active Substance: AMITRIPTYLINE HYDROCHLORIDE
     Indication: Product used for unknown indication
     Dosage: UNK
     Route: 065
  31. AMITRIPTYLINE HYDROCHLORIDE [Concomitant]
     Active Substance: AMITRIPTYLINE HYDROCHLORIDE
     Dosage: UNK
     Route: 065
  32. ACETAMINOPHEN [Concomitant]
     Active Substance: ACETAMINOPHEN
     Indication: Product used for unknown indication
     Dosage: UNK
     Route: 065
  33. ACETAMINOPHEN [Concomitant]
     Active Substance: ACETAMINOPHEN
     Dosage: UNK
     Route: 065

REACTIONS (20)
  - Klebsiella sepsis [Unknown]
  - Ovarian failure [Unknown]
  - Acute graft versus host disease [Recovered/Resolved]
  - Bone marrow failure [Unknown]
  - Sepsis [Unknown]
  - Lupus-like syndrome [Recovered/Resolved]
  - Neuropathy peripheral [Unknown]
  - Ear infection staphylococcal [Unknown]
  - Capillary leak syndrome [Unknown]
  - Herpes zoster [Unknown]
  - Rash maculo-papular [Recovered/Resolved]
  - Arthralgia [Recovered/Resolved]
  - Platelet count decreased [Recovered/Resolved]
  - Mucosal inflammation [Unknown]
  - Pain in jaw [Recovered/Resolved]
  - Headache [Recovered/Resolved]
  - Pain in extremity [Recovered/Resolved]
  - Cough [Unknown]
  - Off label use [Unknown]
  - Product administered to patient of inappropriate age [Unknown]

NARRATIVE: CASE EVENT DATE: 20140301
